FAERS Safety Report 23455290 (Version 2)
Quarter: 2024Q1

REPORT INFORMATION
  Report Type: Spontaneous
  Country: US (occurrence: US)
  Receive Date: 20240130
  Receipt Date: 20240220
  Transmission Date: 20240410
  Serious: Yes (Hospitalization)
  Sender: FDA-Public Use
  Company Number: US-002147023-NVSC2024US018108

PATIENT
  Age: 55 Year
  Sex: Male

DRUGS (1)
  1. LUTETIUM OXODOTREOTIDE LU-177 [Suspect]
     Active Substance: LUTETIUM OXODOTREOTIDE LU-177
     Indication: Pancreatic neuroendocrine tumour
     Dosage: UNK
     Route: 065

REACTIONS (1)
  - Neuroglycopenia [Recovered/Resolved]
